FAERS Safety Report 17059567 (Version 1)
Quarter: 2019Q4

REPORT INFORMATION
  Report Type: Spontaneous
  Country: US (occurrence: US)
  Receive Date: 20191121
  Receipt Date: 20191121
  Transmission Date: 20200122
  Serious: Yes (Other)
  Sender: FDA-Public Use
  Company Number: None

PATIENT
  Age: 33 Year
  Sex: Female

DRUGS (2)
  1. STELARA [Suspect]
     Active Substance: USTEKINUMAB
     Indication: ECZEMA
     Dosage: ?          OTHER FREQUENCY:12 WEEKS;?
     Route: 058
     Dates: start: 20180301, end: 20190826
  2. STELARA [Suspect]
     Active Substance: USTEKINUMAB
     Indication: PSORIASIS
     Dosage: ?          OTHER FREQUENCY:12 WEEKS;?
     Route: 058
     Dates: start: 20180301, end: 20190826

REACTIONS (2)
  - Bone pain [None]
  - Hypersensitivity [None]

NARRATIVE: CASE EVENT DATE: 20190701
